FAERS Safety Report 13121697 (Version 2)
Quarter: 2017Q1

REPORT INFORMATION
  Report Type: Spontaneous
  Country: IT (occurrence: IT)
  Receive Date: 20170117
  Receipt Date: 20170119
  Transmission Date: 20170428
  Serious: Yes (Other)
  Sender: FDA-Public Use
  Company Number: IT-SA-2016SA224398

PATIENT
  Age: 57 Year
  Sex: Male

DRUGS (1)
  1. MYOZYME [Suspect]
     Active Substance: ALGLUCOSIDASE ALFA
     Indication: GLYCOGEN STORAGE DISEASE TYPE II
     Route: 041
     Dates: end: 20161119

REACTIONS (4)
  - Rash [Recovered/Resolved]
  - Laryngeal oedema [Recovered/Resolved]
  - Bronchostenosis [Recovered/Resolved]
  - Cough [Recovered/Resolved]

NARRATIVE: CASE EVENT DATE: 20161119
